FAERS Safety Report 8151607-X (Version None)
Quarter: 2012Q1

REPORT INFORMATION
  Report Type: 
  Country: None (occurrence: None)
  Receive Date: 20120220
  Receipt Date: 20120217
  Transmission Date: 20120608
  Serious: Yes (Death, Congenital Anomaly, Other)
  Sender: FDA-Public Use
  Company Number: IE-ABBOTT-12P-229-0904391-00

PATIENT
  Sex: Male

DRUGS (5)
  1. REYATAZ [Suspect]
     Indication: MATERNAL EXPOSURE TIMING UNSPECIFIED
     Route: 064
  2. ZOPICLONE [Suspect]
     Indication: MATERNAL EXPOSURE TIMING UNSPECIFIED
     Route: 064
  3. METHADON HCL TAB [Suspect]
     Indication: MATERNAL EXPOSURE TIMING UNSPECIFIED
     Route: 064
  4. NORVIR [Suspect]
     Indication: MATERNAL EXPOSURE TIMING UNSPECIFIED
     Route: 064
  5. TRUVADA [Suspect]
     Indication: MATERNAL EXPOSURE TIMING UNSPECIFIED
     Route: 064

REACTIONS (7)
  - INTRAVENTRICULAR HAEMORRHAGE NEONATAL [None]
  - HYPOXIA [None]
  - FOETAL CHROMOSOME ABNORMALITY [None]
  - LIMB MALFORMATION [None]
  - NEONATAL RESPIRATORY FAILURE [None]
  - FOETAL EXPOSURE DURING PREGNANCY [None]
  - PREMATURE BABY [None]
